FAERS Safety Report 10926848 (Version 1)
Quarter: 2015Q1

REPORT INFORMATION
  Report Type: Spontaneous
  Country: US (occurrence: None)
  Receive Date: 20150211
  Receipt Date: 20150211
  Transmission Date: 20150721
  Serious: Yes (Other)
  Sender: FDA-Public Use
  Company Number: 2014AJA00033

PATIENT
  Age: 28 Year
  Sex: Female
  Weight: 59 kg

DRUGS (2)
  1. XANAX [Concomitant]
     Active Substance: ALPRAZOLAM
  2. RISPERIDONE TABLETS [Suspect]
     Active Substance: RISPERIDONE
     Indication: ANXIETY
     Route: 048
     Dates: start: 20141020, end: 20141029

REACTIONS (5)
  - Off label use [None]
  - Activities of daily living impaired [None]
  - Tremor [None]
  - Nervousness [None]
  - Heart rate increased [None]

NARRATIVE: CASE EVENT DATE: 20141020
